FAERS Safety Report 12373306 (Version 18)
Quarter: 2020Q2

REPORT INFORMATION
  Report Type: Report from Study
  Country: US (occurrence: US)
  Receive Date: 20160516
  Receipt Date: 20200417
  Transmission Date: 20200713
  Serious: Yes (Hospitalization, Disabling, Other)
  Sender: FDA-Public Use
  Company Number: US-ACTELION-A-NJ2016-133939

PATIENT
  Age: 62 Year
  Sex: Female
  Weight: 47.62 kg

DRUGS (10)
  1. LASIX [Concomitant]
     Active Substance: FUROSEMIDE
     Route: 042
  2. VELETRI [Suspect]
     Active Substance: EPOPROSTENOL
     Dosage: 28.1 NG/KG, PER MIN
     Route: 042
  3. ALBUTEROL. [Concomitant]
     Active Substance: ALBUTEROL
  4. TREPROSTINIL DIOLAMIN [Suspect]
     Active Substance: TREPROSTINIL DIOLAMINE
     Indication: PRODUCT USED FOR UNKNOWN INDICATION
     Dosage: 0.5 MG, UNK
     Route: 065
  5. FAMOTIDINE. [Concomitant]
     Active Substance: FAMOTIDINE
  6. WARFARIN [Concomitant]
     Active Substance: WARFARIN
  7. VELETRI [Suspect]
     Active Substance: EPOPROSTENOL
     Indication: PULMONARY ARTERIAL HYPERTENSION
     Dosage: 13.89 NG/KG, PER MIN
     Route: 042
     Dates: start: 20160310
  8. LEVOTHYROXINE. [Concomitant]
     Active Substance: LEVOTHYROXINE
  9. OPSUMIT [Suspect]
     Active Substance: MACITENTAN
     Indication: PULMONARY ARTERIAL HYPERTENSION
     Dosage: 10 MG, QD
     Route: 048
     Dates: start: 20150604, end: 20171220
  10. IPRATROPIUM [Concomitant]
     Active Substance: IPRATROPIUM

REACTIONS (45)
  - Pulmonary arterial hypertension [Recovered/Resolved]
  - Productive cough [Not Recovered/Not Resolved]
  - Decreased activity [Not Recovered/Not Resolved]
  - Dyspnoea exertional [Unknown]
  - Cardiomegaly [Unknown]
  - Pericardial effusion [Recovered/Resolved with Sequelae]
  - Wheezing [Recovered/Resolved]
  - Insomnia [Recovered/Resolved]
  - Somnolence [Recovered/Resolved]
  - Chest discomfort [Not Recovered/Not Resolved]
  - Tachypnoea [Not Recovered/Not Resolved]
  - Pruritus [Recovered/Resolved]
  - Thirst [Recovered/Resolved]
  - Oliguria [Not Recovered/Not Resolved]
  - Aspartate aminotransferase increased [Unknown]
  - Hepatomegaly [Unknown]
  - Dialysis [Unknown]
  - Chest pain [Unknown]
  - Congestive hepatopathy [Not Recovered/Not Resolved]
  - Cough [Recovered/Resolved]
  - Constipation [Not Recovered/Not Resolved]
  - Vomiting [Recovered/Resolved]
  - Gait disturbance [Not Recovered/Not Resolved]
  - Condition aggravated [Recovered/Resolved]
  - Right ventricular failure [Unknown]
  - Paraesthesia [Recovered/Resolved]
  - Palpitations [Not Recovered/Not Resolved]
  - Swelling [Not Recovered/Not Resolved]
  - Ascites [Recovered/Resolved]
  - Dyspnoea [Recovered/Resolved]
  - Hypotension [Recovered/Resolved]
  - Peripheral swelling [Unknown]
  - Dry skin [Recovered/Resolved]
  - Decreased appetite [Recovered/Resolved]
  - Nasopharyngitis [Recovered/Resolved]
  - Abdominal distension [Not Recovered/Not Resolved]
  - Therapy non-responder [Unknown]
  - Headache [Recovered/Resolved]
  - Weight decreased [Recovered/Resolved]
  - Nausea [Unknown]
  - Oedema [Unknown]
  - Renal failure [Recovered/Resolved]
  - Fluid overload [Unknown]
  - Sputum discoloured [Recovered/Resolved]
  - Ventricular dysfunction [Unknown]

NARRATIVE: CASE EVENT DATE: 20150825
